FAERS Safety Report 20616004 (Version 1)
Quarter: 2022Q1

REPORT INFORMATION
  Report Type: Report from Study
  Country: KR (occurrence: KR)
  Receive Date: 20220321
  Receipt Date: 20220321
  Transmission Date: 20220423
  Serious: Yes (Other)
  Sender: FDA-Public Use
  Company Number: KR-TAKEDA-2022TUS016605

PATIENT
  Sex: Male

DRUGS (13)
  1. BRIGATINIB [Suspect]
     Active Substance: BRIGATINIB
     Indication: Non-small cell lung cancer
     Dosage: 90 MILLIGRAM, QD
     Route: 065
     Dates: start: 20210104, end: 20210110
  2. BRIGATINIB [Suspect]
     Active Substance: BRIGATINIB
     Dosage: 180 MILLIGRAM
     Route: 065
     Dates: start: 20210113, end: 20210309
  3. ANORO ELLIPTA [Concomitant]
     Active Substance: UMECLIDINIUM BROMIDE\VILANTEROL TRIFENATATE
     Indication: Asthma-chronic obstructive pulmonary disease overlap syndrome
     Dosage: UNK UNK, QD
     Route: 055
     Dates: start: 20210113, end: 20210223
  4. ARNUITY ELLIPTA [Concomitant]
     Active Substance: FLUTICASONE FUROATE
     Indication: Asthma-chronic obstructive pulmonary disease overlap syndrome
     Dosage: UNK UNK, QD
     Route: 055
     Dates: start: 20210113, end: 20210223
  5. CADUET [Concomitant]
     Active Substance: AMLODIPINE BESYLATE\ATORVASTATIN CALCIUM
     Indication: Hypertension
     Dosage: UNK, QD
     Route: 048
     Dates: start: 20210113, end: 20210223
  6. LINAGLIPTIN\METFORMIN HYDROCHLORIDE [Concomitant]
     Active Substance: LINAGLIPTIN\METFORMIN HYDROCHLORIDE
     Indication: Diabetes mellitus
     Dosage: UNK, QD
     Route: 048
     Dates: start: 20210113, end: 20210223
  7. FERROUS SULFATE\PROTEASE [Concomitant]
     Active Substance: FERROUS SULFATE\PROTEASE
     Indication: Anaemia
     Dosage: UNK, QD
     Route: 048
     Dates: start: 20210113, end: 20210223
  8. MAGNESIUM HYDROXIDE [Concomitant]
     Active Substance: MAGNESIUM HYDROXIDE
     Indication: Constipation
     Dosage: 1000 MILLIGRAM, QD
     Route: 048
     Dates: start: 20210113, end: 20210223
  9. SINGULAIR [Concomitant]
     Active Substance: MONTELUKAST SODIUM
     Indication: Asthma-chronic obstructive pulmonary disease overlap syndrome
     Dosage: 10 MILLIGRAM, QD
     Route: 048
     Dates: start: 20210113, end: 20210223
  10. DOXOFYLLINE [Concomitant]
     Active Substance: DOXOFYLLINE
     Indication: Asthma-chronic obstructive pulmonary disease overlap syndrome
     Dosage: UNK, QD
     Route: 048
     Dates: start: 20210113, end: 20210223
  11. THEOBROMINE [Concomitant]
     Active Substance: THEOBROMINE
     Indication: Bronchitis chronic
     Dosage: 600 MILLIGRAM, QD
     Route: 048
     Dates: start: 20210113, end: 20210223
  12. BEARSTA [Concomitant]
     Indication: Chronic gastritis
     Dosage: UNK, QD
     Route: 048
     Dates: start: 20210113, end: 20210223
  13. SYNATURA [Concomitant]
     Indication: Bronchitis chronic
     Dosage: 30 MILLILITER, QD
     Route: 048
     Dates: start: 20210113, end: 20210223

REACTIONS (1)
  - Delirium [Recovered/Resolved]

NARRATIVE: CASE EVENT DATE: 20210122
